FAERS Safety Report 7774129-4 (Version None)
Quarter: 2011Q3

REPORT INFORMATION
  Report Type: 
  Country: None (occurrence: None)
  Receive Date: 20110923
  Receipt Date: 20110913
  Transmission Date: 20111222
  Serious: Yes (Hospitalization)
  Sender: FDA-Public Use
  Company Number: US-JNJFOC-20110906234

PATIENT
  Sex: Female
  Weight: 37 kg

DRUGS (12)
  1. ANTIBIOTICS [Concomitant]
     Indication: INFLAMMATORY BOWEL DISEASE
  2. FERROUS SULFATE TAB [Concomitant]
  3. METHOTREXATE [Concomitant]
  4. TYSABRI [Concomitant]
  5. MULTIVITAMIN [Concomitant]
  6. NYSTATIN [Concomitant]
  7. CHOLECALCIFEROL [Concomitant]
  8. TYSABRI [Concomitant]
     Dates: start: 20110831
  9. PREDNISONE [Concomitant]
  10. METRONIDAZOLE [Concomitant]
     Indication: ACROCHORDON
  11. CALCIUM WITH VITAMIN D [Concomitant]
  12. REMICADE [Suspect]
     Indication: CROHN'S DISEASE
     Route: 042
     Dates: end: 20090306

REACTIONS (1)
  - CROHN'S DISEASE [None]
